FAERS Safety Report 19444581 (Version 5)
Quarter: 2022Q2

REPORT INFORMATION
  Report Type: Report from Study
  Country: CA (occurrence: CA)
  Receive Date: 20210621
  Receipt Date: 20220624
  Transmission Date: 20220721
  Serious: Yes (Hospitalization, Other)
  Sender: FDA-Public Use
  Company Number: CA-TAKEDA-2021TUS038595

PATIENT
  Age: 54 Year
  Sex: Female

DRUGS (27)
  1. VEDOLIZUMAB [Suspect]
     Active Substance: VEDOLIZUMAB
     Indication: Crohn^s disease
     Dosage: 300 MILLIGRAM
     Route: 042
     Dates: start: 20170201
  2. VEDOLIZUMAB [Suspect]
     Active Substance: VEDOLIZUMAB
     Dosage: 300 MILLIGRAM
     Route: 042
  3. VEDOLIZUMAB [Suspect]
     Active Substance: VEDOLIZUMAB
     Dosage: 300 MILLIGRAM, Q6WEEKS
     Route: 042
     Dates: start: 20220621
  4. PENTASA [Concomitant]
     Active Substance: MESALAMINE
     Dosage: UNK
  5. BUTYLSCOPOLAMINE BROMIDE [Concomitant]
     Active Substance: BUTYLSCOPOLAMINE BROMIDE
     Dosage: UNK
  6. RANITIDINE [Concomitant]
     Active Substance: RANITIDINE
     Dosage: 150 MILLIGRAM
     Route: 048
     Dates: start: 20220112
  7. PANTOPRAZOLE SODIUM [Concomitant]
     Active Substance: PANTOPRAZOLE SODIUM
     Dosage: 40 MILLIGRAM
     Route: 048
  8. METOPROLOL [Concomitant]
     Active Substance: METOPROLOL
     Dosage: 12.5 MILLIGRAM
     Route: 048
     Dates: start: 2013
  9. SOLIFENACIN [Concomitant]
     Active Substance: SOLIFENACIN
     Dosage: UNK
  10. VESICARE [Concomitant]
     Active Substance: SOLIFENACIN SUCCINATE
     Indication: Bladder disorder
     Dosage: UNK
  11. BETAHISTINE [Concomitant]
     Active Substance: BETAHISTINE
     Dosage: 8 MILLIGRAM
     Route: 048
     Dates: start: 2018
  12. BACLOFEN [Concomitant]
     Active Substance: BACLOFEN
     Dosage: 10 MILLIGRAM
     Route: 048
     Dates: start: 2013
  13. MELOXICAM [Concomitant]
     Active Substance: MELOXICAM
     Indication: Fibromyalgia
     Dosage: UNK
  14. LATANOPROST [Concomitant]
     Active Substance: LATANOPROST
     Dosage: UNK UNK, BID
  15. Kirkland signature allergy medicine [Concomitant]
     Indication: Seasonal allergy
     Dosage: UNK
  16. B50 COMPLEX [Concomitant]
     Dosage: UNK
     Route: 048
     Dates: start: 2010
  17. VITAMIN D NOS [Concomitant]
     Active Substance: VITAMIN D NOS
     Dosage: 2000 INTERNATIONAL UNIT
     Route: 048
     Dates: start: 2017
  18. EVENING PRIMROSE [Concomitant]
     Dosage: UNK
  19. HERBALS\TURMERIC [Concomitant]
     Active Substance: HERBALS\TURMERIC
     Dosage: UNK
  20. TYLENOL [Concomitant]
     Active Substance: ACETAMINOPHEN
     Indication: Pain
     Dosage: 650 MILLIGRAM
     Route: 048
  21. TYLENOL [Concomitant]
     Active Substance: ACETAMINOPHEN
     Indication: Premedication
  22. METHYLPREDNISOLONE [Concomitant]
     Active Substance: METHYLPREDNISOLONE
     Indication: Premedication
     Dosage: 80 MILLIGRAM
     Route: 042
  23. BENADRYL [Concomitant]
     Active Substance: DIPHENHYDRAMINE HYDROCHLORIDE
     Indication: Premedication
     Dosage: 50 MILLIGRAM
     Route: 042
  24. TOVIAZ [Concomitant]
     Active Substance: FESOTERODINE FUMARATE
     Dosage: 4 MILLIGRAM
     Route: 048
     Dates: start: 2021
  25. LORAZEPAM [Concomitant]
     Active Substance: LORAZEPAM
     Dosage: 5 MILLIGRAM
     Route: 048
     Dates: start: 2010
  26. MYLAN ESOMEPRAZOLE [Concomitant]
     Dosage: 20 MILLIGRAM
     Route: 048
  27. CELEBREX [Concomitant]
     Active Substance: CELECOXIB
     Dosage: 400 MILLIGRAM
     Route: 048
     Dates: start: 20220520

REACTIONS (4)
  - Volvulus [Not Recovered/Not Resolved]
  - Abdominal adhesions [Unknown]
  - Therapeutic reaction time decreased [Unknown]
  - Off label use [Unknown]

NARRATIVE: CASE EVENT DATE: 20220223
